FAERS Safety Report 17820038 (Version 1)
Quarter: 2020Q2

REPORT INFORMATION
  Report Type: Report from Study
  Country: CN (occurrence: CN)
  Receive Date: 20200525
  Receipt Date: 20200525
  Transmission Date: 20200714
  Serious: Yes (Other)
  Sender: FDA-Public Use
  Company Number: CN-ROCHE-2320952

PATIENT
  Age: 61 Year
  Sex: Female

DRUGS (2)
  1. AVASTIN [Suspect]
     Active Substance: BEVACIZUMAB
     Indication: COLORECTAL CANCER
     Route: 041
     Dates: start: 20170804
  2. AVASTIN [Suspect]
     Active Substance: BEVACIZUMAB
     Route: 041
     Dates: start: 20180404

REACTIONS (6)
  - Product deposit [Unknown]
  - Product storage error [Unknown]
  - Haematuria traumatic [Unknown]
  - Ureteric obstruction [Unknown]
  - Intestinal polyp [Unknown]
  - Intestinal polyp [Unknown]

NARRATIVE: CASE EVENT DATE: 201905
